FAERS Safety Report 10854846 (Version 1)
Quarter: 2015Q1

REPORT INFORMATION
  Report Type: Spontaneous
  Country: US (occurrence: US)
  Receive Date: 20150223
  Receipt Date: 20150223
  Transmission Date: 20150721
  Serious: Yes (Other)
  Sender: FDA-Public Use
  Company Number: US-CELGENEUS-163-21880-14064986

PATIENT
  Sex: Male

DRUGS (1)
  1. REVLIMID [Suspect]
     Active Substance: LENALIDOMIDE
     Indication: MYELODYSPLASTIC SYNDROME
     Dosage: 10 MILLIGRAM
     Route: 048
     Dates: start: 201311

REACTIONS (6)
  - Hallucination [Unknown]
  - Myelodysplastic syndrome [Unknown]
  - Weight decreased [Unknown]
  - Decreased appetite [Unknown]
  - Peripheral swelling [Unknown]
  - Drug intolerance [Unknown]
